FAERS Safety Report 4915666-7 (Version None)
Quarter: 2006Q1

REPORT INFORMATION
  Report Type: 
  Country: None (occurrence: None)
  Receive Date: 20060217
  Receipt Date: 20060206
  Transmission Date: 20060701
  Serious: Yes (Hospitalization, Disabling)
  Sender: FDA-Public Use
  Company Number: US-MERCK-0602USA01370

PATIENT
  Age: 58 Year
  Sex: Male
  Weight: 84 kg

DRUGS (3)
  1. VIOXX [Suspect]
     Indication: BACK DISORDER
     Route: 048
     Dates: start: 20020101, end: 20031101
  2. VIOXX [Suspect]
     Indication: ARTHROPATHY
     Route: 048
     Dates: start: 20020101, end: 20031101
  3. PREVACID [Concomitant]
     Route: 065

REACTIONS (2)
  - CARDIAC DISORDER [None]
  - CORONARY ARTERY OCCLUSION [None]
